FAERS Safety Report 14715561 (Version 1)
Quarter: 2018Q2

REPORT INFORMATION
  Report Type: Spontaneous
  Country: US (occurrence: US)
  Receive Date: 20180404
  Receipt Date: 20180404
  Transmission Date: 20180711
  Serious: Yes (Other)
  Sender: FDA-Public Use
  Company Number: US-BAYER-2018-065210

PATIENT
  Age: 75 Year
  Sex: Female
  Weight: 73 kg

DRUGS (2)
  1. BAYER LOW DOSE [Suspect]
     Active Substance: ASPIRIN
     Indication: CEREBROVASCULAR ACCIDENT PROPHYLAXIS
     Dosage: UNK
     Route: 048
     Dates: end: 20170726
  2. INOSITOL [Concomitant]
     Active Substance: INOSITOL

REACTIONS (5)
  - Poor quality drug administered [Unknown]
  - Product use in unapproved indication [Unknown]
  - Product container issue [None]
  - Product contamination microbial [Unknown]
  - Product storage error [Unknown]
